FAERS Safety Report 6698548-2 (Version None)
Quarter: 2010Q2

REPORT INFORMATION
  Report Type: 
  Country: None (occurrence: None)
  Receive Date: 20100427
  Receipt Date: 20100416
  Transmission Date: 20101027
  Serious: Yes (Other)
  Sender: FDA-Public Use
  Company Number: JP-AMGEN-QUU407901

PATIENT
  Sex: Male

DRUGS (2)
  1. REGPARA [Suspect]
     Indication: DRUG USE FOR UNKNOWN INDICATION
     Route: 048
  2. OXAROL [Concomitant]
     Route: 042

REACTIONS (1)
  - ALOPECIA [None]
